FAERS Safety Report 8987511 (Version 8)
Quarter: 2014Q2

REPORT INFORMATION
  Report Type: Spontaneous
  Country: GB (occurrence: GB)
  Receive Date: 20121227
  Receipt Date: 20140620
  Transmission Date: 20141212
  Serious: Yes (Other)
  Sender: FDA-Public Use
  Company Number: PHFR2012GB006331

PATIENT
  Age: 40 Year
  Sex: Male

DRUGS (6)
  1. CLOZARIL [Suspect]
     Indication: PSYCHOTIC DISORDER
     Dosage: 350 MG
     Route: 048
     Dates: start: 20040121
  2. CIPRAMIL [Concomitant]
     Dosage: 20 MG, QD
     Route: 048
  3. ZOPICLONE [Concomitant]
     Indication: DEPRESSION
     Dosage: 7.5 MG, NOCTE
     Route: 048
  4. PIRENZEPINE [Concomitant]
     Indication: INSOMNIA
     Dosage: 50 MG, BID
  5. METFORMINE [Concomitant]
     Indication: SALIVARY HYPERSECRETION
     Dosage: 50 MG, UNK
  6. GLICLAZIDE [Concomitant]
     Dosage: UNK

REACTIONS (5)
  - Differential white blood cell count abnormal [Not Recovered/Not Resolved]
  - Eosinophil count increased [Recovered/Resolved]
  - Hepatic steatosis [Unknown]
  - Gamma-glutamyltransferase increased [Unknown]
  - Mean cell haemoglobin concentration increased [Recovered/Resolved]
